FAERS Safety Report 5664994-9 (Version None)
Quarter: 2008Q1

REPORT INFORMATION
  Report Type: 
  Country: None (occurrence: None)
  Receive Date: 20080314
  Receipt Date: 20080303
  Transmission Date: 20080703
  Serious: Yes (Hospitalization, Other)
  Sender: FDA-Public Use
  Company Number: US-PFIZER INC-2008020191

PATIENT
  Sex: Male
  Weight: 97.727 kg

DRUGS (4)
  1. LYRICA [Suspect]
     Indication: NEURALGIA
  2. INSULIN [Concomitant]
  3. LIPITOR [Concomitant]
  4. AVODART [Concomitant]

REACTIONS (8)
  - BLOOD UREA INCREASED [None]
  - DEHYDRATION [None]
  - DIARRHOEA [None]
  - DRY MOUTH [None]
  - FEELING ABNORMAL [None]
  - INCREASED APPETITE [None]
  - MONOPLEGIA [None]
  - OEDEMA PERIPHERAL [None]
